FAERS Safety Report 10674716 (Version 1)
Quarter: 2014Q4

REPORT INFORMATION
  Report Type: Spontaneous
  Country: US (occurrence: US)
  Receive Date: 20141224
  Receipt Date: 20141224
  Transmission Date: 20150529
  Serious: No
  Sender: FDA-Public Use
  Company Number: US-BAUSCH-SYM-2014-18687

PATIENT
  Age: 17 Year
  Sex: Female

DRUGS (5)
  1. XENAZINE [Suspect]
     Active Substance: TETRABENAZINE
     Route: 048
     Dates: start: 20140305
  2. CLONAZEPAM. [Suspect]
     Active Substance: CLONAZEPAM
     Indication: SLEEP DISORDER
     Dosage: 0.5 TO 1 MG AT NIGHT
     Route: 048
     Dates: start: 20140213
  3. XENAZINE [Suspect]
     Active Substance: TETRABENAZINE
     Indication: CANAVAN DISEASE
     Route: 048
     Dates: start: 201311
  4. XENAZINE [Suspect]
     Active Substance: TETRABENAZINE
     Route: 048
     Dates: start: 20140119
  5. XENAZINE [Suspect]
     Active Substance: TETRABENAZINE
     Route: 048
     Dates: start: 20140119

REACTIONS (6)
  - Off label use [Unknown]
  - Musculoskeletal stiffness [Unknown]
  - Fatigue [Recovering/Resolving]
  - Abnormal behaviour [Recovered/Resolved]
  - Gastroenteritis viral [Unknown]
  - Medication error [Unknown]

NARRATIVE: CASE EVENT DATE: 201311
